FAERS Safety Report 4745133-5 (Version None)
Quarter: 2005Q3

REPORT INFORMATION
  Report Type: 
  Country: None (occurrence: None)
  Receive Date: 20050815
  Receipt Date: 20050802
  Transmission Date: 20060218
  Serious: Yes (Death)
  Sender: FDA-Public Use
  Company Number: FR-JNJFOC-20050601357

PATIENT
  Sex: Female
  Weight: 57 kg

DRUGS (2)
  1. REMINYL [Suspect]
     Route: 048
  2. EBIXA [Suspect]
     Route: 048

REACTIONS (3)
  - BUDD-CHIARI SYNDROME [None]
  - HEPATIC ENCEPHALOPATHY [None]
  - HEPATIC VEIN THROMBOSIS [None]
